FAERS Safety Report 6222651-4 (Version None)
Quarter: 2009Q2

REPORT INFORMATION
  Report Type: 
  Country: None (occurrence: None)
  Receive Date: 20090611
  Receipt Date: 20090603
  Transmission Date: 20091009
  Serious: Yes (Other)
  Sender: FDA-Public Use
  Company Number: CA-JNJFOC-20080103277

PATIENT
  Sex: Female
  Weight: 85 kg

DRUGS (17)
  1. REMICADE [Suspect]
     Route: 042
  2. REMICADE [Suspect]
     Route: 042
  3. REMICADE [Suspect]
     Route: 042
  4. REMICADE [Suspect]
     Route: 042
  5. REMICADE [Suspect]
     Route: 042
  6. REMICADE [Suspect]
     Route: 042
  7. REMICADE [Suspect]
     Route: 042
  8. REMICADE [Suspect]
     Route: 042
  9. REMICADE [Suspect]
     Route: 042
  10. REMICADE [Suspect]
     Route: 042
  11. REMICADE [Suspect]
     Indication: RHEUMATOID ARTHRITIS
     Route: 042
  12. FEMARA [Suspect]
     Indication: DRUG USE FOR UNKNOWN INDICATION
  13. NEXUIM [Concomitant]
  14. MELOXICAM [Concomitant]
  15. METHOTREXATE [Concomitant]
  16. CALCIUM [Concomitant]
  17. VITAMIN D [Concomitant]

REACTIONS (6)
  - BREAST CANCER [None]
  - CHEST DISCOMFORT [None]
  - HEADACHE [None]
  - OEDEMA [None]
  - PALPITATIONS [None]
  - WEIGHT INCREASED [None]
